FAERS Safety Report 12766957 (Version 1)
Quarter: 2016Q3

REPORT INFORMATION
  Report Type: Spontaneous
  Country: US (occurrence: US)
  Receive Date: 20160921
  Receipt Date: 20160921
  Transmission Date: 20161109
  Serious: No
  Sender: FDA-Public Use
  Company Number: US-TEVA-687066USA

PATIENT
  Age: 79 Year
  Sex: Female
  Weight: 65.38 kg

DRUGS (14)
  1. XANAX [Concomitant]
     Active Substance: ALPRAZOLAM
     Indication: SLEEP DISORDER
  2. XANAX [Concomitant]
     Active Substance: ALPRAZOLAM
     Indication: DEPRESSION
  3. PROCTOSOL [Concomitant]
     Indication: HAEMORRHOIDS
  4. QNASL [Suspect]
     Active Substance: BECLOMETHASONE DIPROPIONATE
     Indication: COUGH
     Dates: start: 20160817
  5. CILOXAN [Concomitant]
     Active Substance: CIPROFLOXACIN HYDROCHLORIDE
  6. CELEXA [Concomitant]
     Active Substance: CITALOPRAM HYDROBROMIDE
     Indication: DEPRESSION
  7. NORTRIPTYLINE [Concomitant]
     Active Substance: NORTRIPTYLINE
     Indication: SLEEP DISORDER
  8. SIMVASTATIN. [Concomitant]
     Active Substance: SIMVASTATIN
     Indication: BLOOD CHOLESTEROL INCREASED
  9. AMBIEN [Concomitant]
     Active Substance: ZOLPIDEM TARTRATE
     Indication: SLEEP DISORDER
  10. VITAMIN D [Concomitant]
     Active Substance: CHOLECALCIFEROL
     Indication: VITAMIN D DEFICIENCY
  11. SYNALAR [Concomitant]
     Active Substance: FLUOCINOLONE ACETONIDE
     Indication: SKIN CANCER
  12. HYDROCORTISONE. [Concomitant]
     Active Substance: HYDROCORTISONE
  13. NYSTATIN. [Concomitant]
     Active Substance: NYSTATIN
  14. RANITIDINE. [Concomitant]
     Active Substance: RANITIDINE
     Indication: DYSPEPSIA

REACTIONS (2)
  - Nasal discomfort [Not Recovered/Not Resolved]
  - Lacrimation increased [Not Recovered/Not Resolved]

NARRATIVE: CASE EVENT DATE: 20160817
